FAERS Safety Report 9968346 (Version 1)
Quarter: 2014Q1

REPORT INFORMATION
  Report Type: Report from Study
  Country: US (occurrence: US)
  Receive Date: 20140306
  Receipt Date: 20140306
  Transmission Date: 20141002
  Serious: No
  Sender: FDA-Public Use
  Company Number: US-ABBVIE-13P-163-1144602-00

PATIENT
  Age: 30 Year
  Sex: Female

DRUGS (6)
  1. HUMIRA [Suspect]
     Indication: COLITIS ULCERATIVE
     Dates: start: 20130822
  2. HUMIRA [Suspect]
     Dates: start: 20130905
  3. PENTASA [Concomitant]
     Indication: COLITIS ULCERATIVE
  4. ENTOCORT [Concomitant]
     Indication: COLITIS ULCERATIVE
     Dosage: DAILY
  5. LEXAPRO [Concomitant]
     Indication: ANXIETY
     Dosage: DAILY
  6. PROBIOTICS NOS [Concomitant]
     Indication: COLITIS ULCERATIVE
     Dosage: DAILY

REACTIONS (4)
  - Device malfunction [Not Recovered/Not Resolved]
  - Injection site pain [Not Recovered/Not Resolved]
  - Injection site haemorrhage [Not Recovered/Not Resolved]
  - Injection site swelling [Not Recovered/Not Resolved]
